FAERS Safety Report 9855445 (Version 1)
Quarter: 2014Q1

REPORT INFORMATION
  Report Type: Spontaneous
  Country: US (occurrence: None)
  Receive Date: 20140129
  Receipt Date: 20140129
  Transmission Date: 20141002
  Serious: No
  Sender: FDA-Public Use
  Company Number: None

PATIENT
  Age: 61 Year
  Sex: Male
  Weight: 74.84 kg

DRUGS (1)
  1. LITHIUM CARBONATE [Suspect]
     Indication: MANIA
     Route: 048

REACTIONS (8)
  - Incoherent [None]
  - Dysarthria [None]
  - Myoclonus [None]
  - Asterixis [None]
  - Encephalopathy [None]
  - Antipsychotic drug level above therapeutic [None]
  - Fluid intake reduced [None]
  - Blood creatinine increased [None]
